FAERS Safety Report 23880595 (Version 4)
Quarter: 2025Q4

REPORT INFORMATION
  Report Type: Spontaneous
  Country: US (occurrence: US)
  Receive Date: 20240521
  Receipt Date: 20251003
  Transmission Date: 20260119
  Serious: No
  Sender: PFIZER
  Company Number: US-PFIZER INC-202400130399

PATIENT
  Age: 43 Year
  Sex: Female

DRUGS (1)
  1. LITFULO [Suspect]
     Active Substance: RITLECITINIB TOSYLATE
     Indication: Alopecia totalis
     Dosage: 50 MG, 1X/DAY
     Route: 048
     Dates: start: 202404

REACTIONS (4)
  - Drug ineffective [Unknown]
  - Off label use [Unknown]
  - Product use issue [Unknown]
  - Maternal exposure during pregnancy [Unknown]

NARRATIVE: CASE EVENT DATE: 20240101
